FAERS Safety Report 20533652 (Version 1)
Quarter: 2022Q1

REPORT INFORMATION
  Report Type: Spontaneous
  Country: US (occurrence: US)
  Receive Date: 20220301
  Receipt Date: 20220301
  Transmission Date: 20220424
  Serious: Yes (Other)
  Sender: FDA-Public Use
  Company Number: US-ELI_LILLY_AND_COMPANY-US202202008166

PATIENT
  Age: 38 Year
  Sex: Female
  Weight: 45.36 kg

DRUGS (4)
  1. EVISTA [Suspect]
     Active Substance: RALOXIFENE HYDROCHLORIDE
     Indication: Osteoporosis prophylaxis
     Dosage: UNK, UNKNOWN
     Route: 065
  2. DUAVEE [Suspect]
     Active Substance: BAZEDOXIFENE ACETATE\ESTROGENS, CONJUGATED
     Indication: Osteoporosis prophylaxis
     Dosage: UNK, UNKNOWN
     Route: 065
  3. ESTROGENS [Suspect]
     Active Substance: ESTROGENS
     Indication: Osteoporosis prophylaxis
     Dosage: UNK, UNKNOWN
     Route: 065
  4. RALOXIFENE [Suspect]
     Active Substance: RALOXIFENE
     Indication: Osteoporosis prophylaxis
     Dosage: UNK, UNKNOWN
     Route: 065

REACTIONS (1)
  - Drug ineffective [Not Recovered/Not Resolved]
